FAERS Safety Report 11176403 (Version 8)
Quarter: 2015Q3

REPORT INFORMATION
  Report Type: Spontaneous
  Country: DK (occurrence: DK)
  Receive Date: 20150610
  Receipt Date: 20150724
  Transmission Date: 20151125
  Serious: Yes (Death, Life-Threatening, Hospitalization, Other)
  Sender: FDA-Public Use
  Company Number: DK-PFIZER INC-2015192510

PATIENT
  Age: 79 Year
  Sex: Male

DRUGS (15)
  1. AMITRIPTYLINE [Concomitant]
     Active Substance: AMITRIPTYLINE
     Dosage: UNK
     Route: 065
     Dates: start: 201501, end: 20150427
  2. ETALPHA [Concomitant]
     Active Substance: ALFACALCIDOL
     Indication: CALCIUM METABOLISM DISORDER
     Dosage: UNK
     Dates: start: 20150505
  3. CALCIUMGLUCONAT B.BRAUN [Concomitant]
     Dosage: UNK
     Dates: start: 20150505
  4. ATORVASTATIN CALCIUM. [Concomitant]
     Active Substance: ATORVASTATIN CALCIUM
     Indication: PROPHYLAXIS
     Dosage: UNK
     Dates: start: 2014
  5. PIPERACILLIN/TAZOBACTAM SANDOZ [Concomitant]
     Active Substance: PIPERACILLIN SODIUM\TAZOBACTAM SODIUM
     Indication: INFECTION
     Dosage: UNK
     Dates: start: 20150502
  6. LANTUS [Concomitant]
     Active Substance: INSULIN GLARGINE
     Indication: DIABETES MELLITUS
     Dosage: UNK
     Dates: start: 20130404
  7. ELIQUIS [Interacting]
     Active Substance: APIXABAN
     Indication: CEREBROVASCULAR ACCIDENT PROPHYLAXIS
     Dosage: 2.5 MG, 2X/DAY
     Route: 048
     Dates: start: 20150114, end: 20150506
  8. SODIUM CHLORIDE. [Concomitant]
     Active Substance: SODIUM CHLORIDE
     Dosage: UNK
     Dates: start: 20150502
  9. CIPROFLOXACIN ACTAVIS /00697202/ [Concomitant]
     Indication: SEPSIS
     Dosage: UNK
     Dates: start: 20150504
  10. MEDILAX [Concomitant]
     Indication: CONSTIPATION
     Dosage: UNK
     Dates: start: 20150506
  11. TRADOLAN [Concomitant]
     Active Substance: TRAMADOL
     Indication: PAIN
     Dosage: UNK
     Dates: start: 201501
  12. PINEX /00020001/ [Concomitant]
     Active Substance: ACETAMINOPHEN
     Indication: PAIN
     Dosage: UNK
     Dates: start: 2013
  13. CORDARONE [Suspect]
     Active Substance: AMIODARONE HYDROCHLORIDE
     Indication: HEART RATE IRREGULAR
     Dosage: 400 MG, 3 TIMES A DAY
     Route: 048
     Dates: start: 20150428
  14. ELIQUIS [Interacting]
     Active Substance: APIXABAN
     Indication: ATRIAL FIBRILLATION
  15. AMITRIPTYLINE [Concomitant]
     Active Substance: AMITRIPTYLINE
     Indication: PAIN
     Dosage: UNK
     Route: 058
     Dates: start: 201501, end: 20150427

REACTIONS (13)
  - Cardiac arrest [Fatal]
  - Gingival bleeding [Not Recovered/Not Resolved]
  - Sepsis [Unknown]
  - Metabolic acidosis [Unknown]
  - Epistaxis [Not Recovered/Not Resolved]
  - Haemoglobin decreased [Unknown]
  - Haemorrhagic diathesis [Not Recovered/Not Resolved]
  - Infusion site haemorrhage [Not Recovered/Not Resolved]
  - Pupils unequal [Not Recovered/Not Resolved]
  - Renal failure [Unknown]
  - Calcium ionised decreased [Unknown]
  - Drug interaction [Not Recovered/Not Resolved]
  - Depressed level of consciousness [Not Recovered/Not Resolved]

NARRATIVE: CASE EVENT DATE: 20150502
